FAERS Safety Report 13563305 (Version 1)
Quarter: 2017Q2

REPORT INFORMATION
  Report Type: Spontaneous
  Country: US (occurrence: US)
  Receive Date: 20170519
  Receipt Date: 20170519
  Transmission Date: 20170830
  Serious: No
  Sender: FDA-Public Use
  Company Number: US-009507513-1705USA002938

PATIENT
  Sex: Male

DRUGS (2)
  1. ZOSTAVAX [Suspect]
     Active Substance: VARICELLA-ZOSTER VIRUS STRAIN OKA/MERCK LIVE ANTIGEN
     Indication: PROPHYLAXIS
     Dosage: 1 DF
     Dates: start: 201505, end: 201505
  2. STERILE DILUENT [Suspect]
     Active Substance: WATER
     Indication: PROPHYLAXIS
     Dosage: UNK
     Dates: start: 201505

REACTIONS (1)
  - Antibody test negative [Not Recovered/Not Resolved]
